FAERS Safety Report 12863177 (Version 3)
Quarter: 2017Q1

REPORT INFORMATION
  Report Type: Spontaneous
  Country: US (occurrence: US)
  Receive Date: 20161019
  Receipt Date: 20170316
  Transmission Date: 20170428
  Serious: Yes (Hospitalization, Other)
  Sender: FDA-Public Use
  Company Number: US-PFIZER INC-2016487763

PATIENT
  Sex: Female

DRUGS (1)
  1. REVATIO [Suspect]
     Active Substance: SILDENAFIL CITRATE
     Dosage: 20 MG, UNK

REACTIONS (4)
  - Chronic obstructive pulmonary disease [Unknown]
  - Pneumonia [Unknown]
  - Pulmonary hypertension [Unknown]
  - Renal injury [Unknown]

NARRATIVE: CASE EVENT DATE: 201702
